FAERS Safety Report 12729409 (Version 4)
Quarter: 2017Q2

REPORT INFORMATION
  Report Type: Report from Study
  Country: JP (occurrence: JP)
  Receive Date: 20160909
  Receipt Date: 20170622
  Transmission Date: 20170830
  Serious: Yes (Hospitalization, Other)
  Sender: FDA-Public Use
  Company Number: JP-JNJFOC-20160906999

PATIENT
  Age: 75 Year
  Sex: Female
  Weight: 53 kg

DRUGS (2)
  1. YONDELIS [Suspect]
     Active Substance: TRABECTEDIN
     Indication: UTERINE LEIOMYOSARCOMA
     Dosage: 24 HOURS INFUSION
     Route: 041
     Dates: start: 20160826
  2. DEXAMETHASONE. [Concomitant]
     Active Substance: DEXAMETHASONE
     Route: 065
     Dates: start: 20160826

REACTIONS (3)
  - Injection site necrosis [Recovering/Resolving]
  - Extravasation [Unknown]
  - Blood creatine phosphokinase increased [Recovered/Resolved]

NARRATIVE: CASE EVENT DATE: 20160831
